FAERS Safety Report 8832170 (Version 3)
Quarter: 2013Q2

REPORT INFORMATION
  Report Type: Report from Study
  Country: US (occurrence: US)
  Receive Date: 20121009
  Receipt Date: 20130403
  Transmission Date: 20140414
  Serious: Yes (Other)
  Sender: FDA-Public Use
  Company Number: US-ROCHE-1043637

PATIENT
  Age: 56 Year
  Sex: Male
  Weight: 89 kg

DRUGS (19)
  1. PEG-INTERFERON ALFA 2A [Suspect]
     Indication: CHRONIC HEPATITIS C
     Route: 058
     Dates: start: 20111207, end: 20120201
  2. RIBAVIRIN [Suspect]
     Indication: CHRONIC HEPATITIS C
     Route: 048
     Dates: start: 20111207
  3. TRIAMCINOLONE [Suspect]
     Indication: RASH
     Route: 065
     Dates: start: 20120215
  4. PREDNISONE [Suspect]
     Indication: RASH
     Route: 065
     Dates: start: 20120215
  5. PREDNISONE [Suspect]
     Route: 065
     Dates: start: 20121129, end: 20121201
  6. PREDNISONE [Suspect]
     Route: 065
     Dates: start: 20121202, end: 20121204
  7. VISTARIL INJECTION [Suspect]
     Indication: RASH
     Route: 065
     Dates: start: 20120215
  8. VISTARIL INJECTION [Suspect]
     Route: 065
     Dates: start: 20120706
  9. BACTRIM (DS) [Suspect]
     Indication: RASH
     Route: 065
     Dates: start: 20120215
  10. HYDROCORTISONE VALERATE CREAM [Concomitant]
     Indication: URTICARIA
     Route: 061
     Dates: start: 20111207
  11. LISINOPRIL [Concomitant]
     Indication: HYPERTENSION
     Route: 048
     Dates: start: 20120101
  12. PROMETHAZINE [Concomitant]
     Indication: NAUSEA
     Route: 048
     Dates: start: 20111207
  13. AMBIEN [Concomitant]
     Indication: INSOMNIA
     Route: 048
     Dates: start: 20120201
  14. XANAX [Concomitant]
     Indication: ANXIETY
     Route: 048
     Dates: start: 20120201
  15. NEUPOGEN [Concomitant]
  16. VICOPROFEN [Concomitant]
     Dosage: 15/200 MG DAILY
     Route: 065
  17. LUNESTA [Concomitant]
     Indication: INSOMNIA
     Route: 065
     Dates: start: 20120706, end: 20120710
  18. HYDROCHLOROTHIAZIDE [Concomitant]
     Indication: HYPERTENSION
     Route: 048
  19. PLACEBO [Suspect]
     Indication: CHRONIC HEPATITIS C
     Route: 065

REACTIONS (3)
  - Folliculitis [Recovered/Resolved]
  - Rash [Not Recovered/Not Resolved]
  - Dermatitis [Recovered/Resolved]
